FAERS Safety Report 6025759-1 (Version None)
Quarter: 2009Q1

REPORT INFORMATION
  Report Type: 
  Country: None (occurrence: None)
  Receive Date: 20090102
  Receipt Date: 20081222
  Transmission Date: 20090719
  Serious: Yes (Hospitalization)
  Sender: FDA-Public Use
  Company Number: DE-BAXTER-2008BH013812

PATIENT
  Age: 69 Year
  Sex: Female
  Weight: 72 kg

DRUGS (7)
  1. CYCLOPHOSPHAMIDE [Suspect]
     Indication: BREAST CANCER
     Route: 042
     Dates: start: 20080416, end: 20080626
  2. EVEROLIMUS [Suspect]
     Indication: BREAST CANCER
     Route: 065
     Dates: end: 20080812
  3. BEVACIZUMAB [Suspect]
     Indication: BREAST CANCER
     Route: 042
     Dates: start: 20080416, end: 20080626
  4. LAPATINIB [Suspect]
     Indication: BREAST CANCER
     Route: 065
  5. PACLITAXEL [Suspect]
     Indication: BREAST CANCER
     Route: 042
     Dates: start: 20080721, end: 20080812
  6. EPIRUBICIN [Suspect]
     Indication: BREAST CANCER
     Route: 042
     Dates: start: 20080416, end: 20080626
  7. METOPROLOL SUCCINATE [Concomitant]
     Dates: start: 20000101

REACTIONS (10)
  - BONE MARROW FAILURE [None]
  - BREAST PROSTHESIS REMOVAL [None]
  - EMBOLISM [None]
  - GLUCOSE URINE PRESENT [None]
  - HEPATIC ENZYME INCREASED [None]
  - MALIGNANT BREAST LUMP REMOVAL [None]
  - MUCOSAL INFLAMMATION [None]
  - PYREXIA [None]
  - SEPSIS [None]
  - SURGERY [None]
